FAERS Safety Report 26120539 (Version 1)
Quarter: 2025Q4

REPORT INFORMATION
  Report Type: Spontaneous
  Country: EU (occurrence: EU)
  Receive Date: 20251204
  Receipt Date: 20251204
  Transmission Date: 20260117
  Serious: Yes (Life-Threatening, Hospitalization, Other)
  Sender: CATALYST PHARMA
  Company Number: None

PATIENT

DRUGS (4)
  1. FYCOMPA [Suspect]
     Active Substance: PERAMPANEL
     Indication: Epilepsy
     Dosage: 4.0 MILLIGRAM(S) (4 MILLIGRAM(S), 1 IN 1 DAY)
     Route: 048
     Dates: start: 202502, end: 20250516
  2. CLOBAZAM [Suspect]
     Active Substance: CLOBAZAM
     Indication: Epilepsy
     Dosage: 10 MG IN THE MORNING AND 25 MG IN THE EVENING (TOTAL 35 MG).
     Route: 048
     Dates: start: 202501, end: 2025
  3. CLOBAZAM [Suspect]
     Active Substance: CLOBAZAM
     Dosage: DOSE AND FREQUENCY UNKNOWN
     Route: 048
     Dates: start: 2025
  4. VALPROATE SODIUM [Suspect]
     Active Substance: VALPROATE SODIUM
     Indication: Epilepsy
     Dosage: 1000 MILLIGRAM(S) (500 MILLIGRAM(S), 1 IN 12 HOUR)
     Route: 048
     Dates: end: 20250519

REACTIONS (2)
  - Coma [Recovered/Resolved]
  - Neurological decompensation [Recovered/Resolved]

NARRATIVE: CASE EVENT DATE: 20250201
